FAERS Safety Report 7118226-5 (Version None)
Quarter: 2010Q4

REPORT INFORMATION
  Report Type: 
  Country: None (occurrence: None)
  Receive Date: 20101123
  Receipt Date: 20100915
  Transmission Date: 20110411
  Serious: Yes (Other)
  Sender: FDA-Public Use
  Company Number: US-MYLANLABS-2010S1017277

PATIENT
  Age: 87 Year
  Sex: Female
  Weight: 50 kg

DRUGS (2)
  1. LEVETIRACETAM [Suspect]
     Indication: CONVULSION
     Route: 048
     Dates: start: 20090101
  2. ATENOLOL [Concomitant]
     Indication: BLOOD PRESSURE

REACTIONS (1)
  - CONVULSION [None]
